FAERS Safety Report 20791212 (Version 3)
Quarter: 2022Q3

REPORT INFORMATION
  Report Type: Report from Study
  Country: US (occurrence: US)
  Receive Date: 20220505
  Receipt Date: 20220810
  Transmission Date: 20221026
  Serious: Yes (Hospitalization)
  Sender: FDA-Public Use
  Company Number: US-BRISTOL-MYERS SQUIBB COMPANY-2022-028763

PATIENT
  Age: 34 Year
  Sex: Male

DRUGS (2)
  1. ZEPOSIA [Suspect]
     Active Substance: OZANIMOD HYDROCHLORIDE
     Indication: Colitis ulcerative
     Dosage: 0.23 MG- 0.46 MG
     Route: 048
     Dates: start: 20211108, end: 20220225
  2. ZEPOSIA [Suspect]
     Active Substance: OZANIMOD HYDROCHLORIDE
     Route: 048
     Dates: start: 20211126

REACTIONS (2)
  - Dehydration [Unknown]
  - Back pain [Unknown]
